FAERS Safety Report 8301909-9 (Version None)
Quarter: 2012Q2

REPORT INFORMATION
  Report Type: 
  Country: None (occurrence: None)
  Receive Date: 20120420
  Receipt Date: 20120405
  Transmission Date: 20120825
  Serious: Yes (Other)
  Sender: FDA-Public Use
  Company Number: AT-ASTRAZENECA-2012SE25537

PATIENT
  Sex: Female

DRUGS (2)
  1. GOSERELIN [Suspect]
     Indication: BREAST CANCER METASTATIC
     Route: 058
  2. FULVESTRANT [Suspect]
     Indication: BREAST CANCER METASTATIC
     Route: 030

REACTIONS (1)
  - PULMONARY EMBOLISM [None]
